FAERS Safety Report 25042569 (Version 1)
Quarter: 2025Q1

REPORT INFORMATION
  Report Type: Report from Study
  Country: CA (occurrence: CA)
  Receive Date: 20250305
  Receipt Date: 20250305
  Transmission Date: 20250408
  Serious: Yes (Other)
  Sender: TAKEDA
  Company Number: CA-TAKEDA-2024TUS111053

PATIENT
  Sex: Female

DRUGS (6)
  1. VEDOLIZUMAB [Suspect]
     Active Substance: VEDOLIZUMAB
     Indication: Colitis ulcerative
  2. VEDOLIZUMAB [Suspect]
     Active Substance: VEDOLIZUMAB
  3. SYNTHROID [Concomitant]
     Active Substance: LEVOTHYROXINE SODIUM
     Dosage: 0.25 MILLIGRAM, QD
  4. PREDNISONE [Concomitant]
     Active Substance: PREDNISONE
  5. TRIAMTERENE [Concomitant]
     Active Substance: TRIAMTERENE
     Indication: Hypertension
  6. HYDROCHLOROTHIAZIDE [Concomitant]
     Active Substance: HYDROCHLOROTHIAZIDE
     Indication: Hypertension

REACTIONS (1)
  - COVID-19 [Recovering/Resolving]
